FAERS Safety Report 17303603 (Version 3)
Quarter: 2020Q2

REPORT INFORMATION
  Report Type: Report from Study
  Country: US (occurrence: US)
  Receive Date: 20200122
  Receipt Date: 20200610
  Transmission Date: 20200713
  Serious: Yes (Other)
  Sender: FDA-Public Use
  Company Number: US-GILEAD-2019-0443892

PATIENT
  Age: 75 Year
  Sex: Female

DRUGS (3)
  1. PROPRANOLOL [Concomitant]
     Active Substance: PROPRANOLOL HYDROCHLORIDE
     Indication: ANXIETY
  2. IDELALISIB [Suspect]
     Active Substance: IDELALISIB
     Indication: B-CELL LYMPHOMA
     Dosage: 150 MG, BID
     Route: 048
     Dates: start: 20181031
  3. PAROXETINE. [Concomitant]
     Active Substance: PAROXETINE
     Indication: ANXIETY

REACTIONS (8)
  - Deafness [Unknown]
  - Anxiety [Unknown]
  - Disease progression [Unknown]
  - Stress [Unknown]
  - Hypoacusis [Unknown]
  - Hypertension [Unknown]
  - Nervousness [Unknown]
  - Agitation [Unknown]
